FAERS Safety Report 8959532 (Version 1)
Quarter: 2012Q4

REPORT INFORMATION
  Report Type: 
  Country: US (occurrence: US)
  Receive Date: 20121212
  Receipt Date: 20121212
  Transmission Date: 20130627
  Serious: No
  Sender: FDA-Public Use
  Company Number: US-009507513-1212USA003138

PATIENT
  Age: 45 Year

DRUGS (1)
  1. NUVARING [Suspect]
     Dosage: 1 ring for three week use
     Dates: start: 20101001

REACTIONS (1)
  - Device expulsion [Unknown]
